FAERS Safety Report 19900950 (Version 1)
Quarter: 2021Q3

REPORT INFORMATION
  Report Type: Spontaneous
  Country: CO (occurrence: CO)
  Receive Date: 20210929
  Receipt Date: 20210929
  Transmission Date: 20211014
  Serious: No
  Sender: FDA-Public Use
  Company Number: PHHY2015CO132100

PATIENT
  Age: 47 Year
  Sex: Female
  Weight: 70 kg

DRUGS (4)
  1. CAPECITABINE. [Concomitant]
     Active Substance: CAPECITABINE
     Indication: PRODUCT USED FOR UNKNOWN INDICATION
     Dosage: 6 TABLETS PER DAY DURING 14 DAYS
     Route: 065
  2. ACETAMINOPHEN AND CODEINE [Concomitant]
     Active Substance: ACETAMINOPHEN\CODEINE PHOSPHATE
     Indication: PRODUCT USED FOR UNKNOWN INDICATION
     Dosage: UNK
     Route: 065
  3. ONDANSETRON [Suspect]
     Active Substance: ONDANSETRON
     Indication: PRODUCT USE IN UNAPPROVED INDICATION
     Dosage: UNK
     Route: 065
  4. PANITUMUMAB [Suspect]
     Active Substance: PANITUMUMAB
     Indication: COLORECTAL CANCER METASTATIC
     Dosage: 320 MCG, EVERY 15 DAYS
     Route: 042
     Dates: start: 20150515

REACTIONS (15)
  - Skin lesion [Recovering/Resolving]
  - Product use in unapproved indication [Unknown]
  - Hypersensitivity [Recovering/Resolving]
  - Papule [Unknown]
  - Skin exfoliation [Not Recovered/Not Resolved]
  - Pruritus [Unknown]
  - Discomfort [Not Recovered/Not Resolved]
  - Abdominal distension [Not Recovered/Not Resolved]
  - Pain [Unknown]
  - Erythema [Unknown]
  - Rash [Recovering/Resolving]
  - Skin burning sensation [Unknown]
  - Pain of skin [Unknown]
  - Thermal burn [Unknown]
  - Skin reaction [Unknown]

NARRATIVE: CASE EVENT DATE: 20150609
